FAERS Safety Report 6293221-7 (Version None)
Quarter: 2009Q3

REPORT INFORMATION
  Report Type: 
  Country: None (occurrence: None)
  Receive Date: 20090731
  Receipt Date: 20090723
  Transmission Date: 20100115
  Serious: Yes (Hospitalization)
  Sender: FDA-Public Use
  Company Number: AU-ABBOTT-09P-008-0586756-00

PATIENT
  Sex: Male
  Weight: 61 kg

DRUGS (2)
  1. HUMIRA [Suspect]
     Indication: CROHN'S DISEASE
     Route: 058
     Dates: start: 20090520, end: 20090603
  2. HUMIRA [Suspect]
     Route: 058
     Dates: start: 20090617

REACTIONS (4)
  - ARTHRALGIA [None]
  - COUGH [None]
  - LETHARGY [None]
  - PYREXIA [None]
